FAERS Safety Report 7981635-6 (Version None)
Quarter: 2011Q4

REPORT INFORMATION
  Report Type: 
  Country: None (occurrence: None)
  Receive Date: 20111215
  Receipt Date: 20111213
  Transmission Date: 20120403
  Serious: Yes (Life-Threatening, Hospitalization, Other)
  Sender: FDA-Public Use
  Company Number: US-BRISTOL-MYERS SQUIBB COMPANY-15894199

PATIENT
  Age: 82 Year
  Sex: Female

DRUGS (7)
  1. LANTUS [Suspect]
     Indication: TYPE 2 DIABETES MELLITUS
  2. BLINDED: SAXAGLIPTIN [Suspect]
     Indication: TYPE 2 DIABETES MELLITUS
     Dosage: INTERRUPTED:03JUL11
     Dates: start: 20100824
  3. METFORMIN HCL [Suspect]
     Indication: TYPE 2 DIABETES MELLITUS
  4. CELEBREX [Suspect]
  5. BLINDED: PLACEBO [Suspect]
     Indication: TYPE 2 DIABETES MELLITUS
     Dosage: INTERRUPTED:03JUL11
     Dates: start: 20100824
  6. LISINOPRIL AND HYDROCHLOROTHIAZIDE [Suspect]
  7. ASPIRIN [Concomitant]

REACTIONS (3)
  - UROSEPSIS [None]
  - RENAL FAILURE ACUTE [None]
  - FLUID OVERLOAD [None]
